FAERS Safety Report 8288968-7 (Version None)
Quarter: 2012Q2

REPORT INFORMATION
  Report Type: 
  Country: None (occurrence: None)
  Receive Date: 20120412
  Receipt Date: 20120329
  Transmission Date: 20120825
  Serious: Yes (Death)
  Sender: FDA-Public Use
  Company Number: JP-2012-14709

PATIENT
  Age: 78 Year
  Sex: Male
  Weight: 54 kg

DRUGS (9)
  1. BLOPRESS (CANDESARTAN CILEXETIL) [Concomitant]
  2. NOVOLOG [Concomitant]
  3. HEPARIN [Suspect]
     Indication: CEREBROVASCULAR ACCIDENT PROPHYLAXIS
  4. AMLODIPINE [Concomitant]
  5. WARFARIN K (WARFARIN POTASSIUM) [Concomitant]
  6. ASPIRIN [Suspect]
     Indication: CEREBRAL INFARCTION
     Dosage: 100 MG MILLIGRAM(S), DAILY DOSE, ORAL
     Route: 048
     Dates: end: 20120228
  7. LANIRAPID (METILDIGOXIN) [Concomitant]
  8. SAMSCA [Suspect]
     Indication: FLUID RETENTION
     Dosage: 15 MG MILLIGRAM(S), QPM, ORAL
     Route: 048
     Dates: start: 20120301, end: 20120307
  9. LASIX [Concomitant]

REACTIONS (4)
  - SHOCK HAEMORRHAGIC [None]
  - DUODENAL ULCER HAEMORRHAGE [None]
  - HAEMOGLOBIN DECREASED [None]
  - FLUID RETENTION [None]
